FAERS Safety Report 7793422-2 (Version None)
Quarter: 2011Q4

REPORT INFORMATION
  Report Type: 
  Country: None (occurrence: None)
  Receive Date: 20111003
  Receipt Date: 20110922
  Transmission Date: 20120403
  Serious: Yes (Other)
  Sender: FDA-Public Use
  Company Number: US-GENZYME-FABR-1002133

PATIENT

DRUGS (8)
  1. MAGNESIUM OXIDE [Concomitant]
     Indication: PRODUCT USED FOR UNKNOWN INDICATION
     Route: 065
  2. ASPIRIN [Concomitant]
     Indication: PRODUCT USED FOR UNKNOWN INDICATION
     Route: 065
  3. FABRAZYME [Suspect]
     Indication: FABRY'S DISEASE
     Dosage: 0.5 MG/KG, Q2W
     Route: 042
     Dates: start: 20100908
  4. PROGRAF [Concomitant]
     Indication: PRODUCT USED FOR UNKNOWN INDICATION
     Route: 065
  5. ROXICET [Concomitant]
     Indication: PRODUCT USED FOR UNKNOWN INDICATION
     Route: 065
  6. LORCET-HD [Concomitant]
     Indication: PAIN
     Dosage: UNK
     Route: 065
  7. FABRAZYME [Suspect]
     Dosage: 0.9 MG/KG, Q2W
     Route: 042
     Dates: start: 20010731
  8. MYCOPHENOLATE MOFETIL (CELLCEPT) [Concomitant]
     Indication: RENAL TRANSPLANT
     Dosage: 500 MG, UNK
     Route: 065

REACTIONS (7)
  - GASTROINTESTINAL DISORDER [None]
  - PAIN [None]
  - RENAL FAILURE [None]
  - CARDIAC DISORDER [None]
  - EJECTION FRACTION DECREASED [None]
  - FATIGUE [None]
  - WEIGHT DECREASED [None]
